FAERS Safety Report 8304362-4 (Version None)
Quarter: 2012Q2

REPORT INFORMATION
  Report Type: 
  Country: None (occurrence: None)
  Receive Date: 20120423
  Receipt Date: 20120416
  Transmission Date: 20120825
  Serious: Yes (Hospitalization, Other)
  Sender: FDA-Public Use
  Company Number: US-BAYER-2011-123886

PATIENT
  Age: 37 Year
  Sex: Female
  Weight: 95.238 kg

DRUGS (15)
  1. YAZ [Suspect]
     Indication: ORAL CONTRACEPTION
     Dosage: UNK
     Dates: start: 20051001, end: 20090101
  2. YAZ [Suspect]
     Dosage: UNK
     Dates: start: 20051001, end: 20090101
  3. PERCIGORIC [Concomitant]
     Route: 048
  4. IBUPROFEN [Concomitant]
     Dosage: AS NECESSARY
     Route: 048
  5. YASMIN [Suspect]
     Dosage: UNK
     Dates: start: 20051001, end: 20090101
  6. GAVISCON [Concomitant]
     Route: 048
  7. YASMIN [Suspect]
  8. MULTI-VITAMINS [Concomitant]
     Route: 048
  9. SYNTHROID [Concomitant]
  10. YASMIN [Suspect]
     Indication: ORAL CONTRACEPTION
     Dosage: UNK
     Dates: start: 20051001, end: 20090101
  11. DROSPIRENONE AND ETHINYL ESTRADIOL [Suspect]
     Indication: ORAL CONTRACEPTION
     Dosage: UNK
     Dates: start: 20051001, end: 20090101
  12. DROSPIRENONE AND ETHINYL ESTRADIOL [Suspect]
     Dosage: UNK
     Dates: start: 20051001, end: 20090101
  13. LEVOTHYROXINE SODIUM [Concomitant]
     Indication: HYPOTHYROIDISM
     Dosage: 125 ?G, UNK
     Route: 048
  14. NEXIUM [Concomitant]
     Indication: GASTROOESOPHAGEAL REFLUX DISEASE
     Dosage: 40 MG, UNK
     Route: 048
  15. SYNTHROID [Concomitant]

REACTIONS (7)
  - CHOLECYSTITIS CHRONIC [None]
  - INJURY [None]
  - GALLBLADDER DISORDER [None]
  - EMOTIONAL DISTRESS [None]
  - ANXIETY [None]
  - PAIN [None]
  - GENERAL PHYSICAL HEALTH DETERIORATION [None]
